FAERS Safety Report 7434494-4 (Version None)
Quarter: 2011Q2

REPORT INFORMATION
  Report Type: 
  Country: None (occurrence: None)
  Receive Date: 20110425
  Receipt Date: 20110415
  Transmission Date: 20111010
  Serious: Yes (Life-Threatening, Other)
  Sender: FDA-Public Use
  Company Number: JP-JNJFOC-20110408314

PATIENT
  Age: 70 Year
  Sex: Male

DRUGS (10)
  1. RENIVACE [Concomitant]
     Route: 048
  2. ANCARON [Concomitant]
     Route: 048
  3. FINIBAX [Suspect]
     Indication: PNEUMONIA
     Route: 041
  4. LUPRAC [Concomitant]
     Route: 048
  5. SIGMART [Concomitant]
     Route: 048
  6. AMLODIN [Concomitant]
     Route: 048
  7. ARTIST [Concomitant]
     Route: 048
  8. HUMULIN 3/7 [Concomitant]
     Route: 048
  9. ASPIRIN [Concomitant]
     Route: 048
  10. WARFARIN [Concomitant]
     Route: 048

REACTIONS (2)
  - RESPIRATORY FAILURE [None]
  - WHEEZING [None]
